FAERS Safety Report 4714915-8 (Version None)
Quarter: 2005Q3

REPORT INFORMATION
  Report Type: 
  Country: None (occurrence: None)
  Receive Date: 20050715
  Receipt Date: 20050207
  Transmission Date: 20060218
  Serious: Yes (Death, Other)
  Sender: FDA-Public Use
  Company Number: PHEH2005US01806

PATIENT
  Age: 45 Year
  Sex: Female

DRUGS (3)
  1. ZOLEDRONATE [Suspect]
     Indication: MULTIPLE MYELOMA
     Dosage: 4 MG MONTHLY
     Dates: start: 20020901, end: 20040501
  2. DECADRON [Concomitant]
  3. AREDIA [Suspect]
     Dates: start: 20010101, end: 20010101

REACTIONS (5)
  - ASEPTIC NECROSIS BONE [None]
  - BONE DISORDER [None]
  - MALIGNANT NEOPLASM PROGRESSION [None]
  - MULTIPLE MYELOMA [None]
  - TOOTH EXTRACTION [None]
